FAERS Safety Report 8174418-8 (Version None)
Quarter: 2012Q1

REPORT INFORMATION
  Report Type: 
  Country: None (occurrence: None)
  Receive Date: 20120229
  Receipt Date: 20120221
  Transmission Date: 20120608
  Serious: Yes (Disabling, Other)
  Sender: FDA-Public Use
  Company Number: CA-ELI_LILLY_AND_COMPANY-CA201201004468

PATIENT
  Age: 64 Year
  Sex: Female

DRUGS (15)
  1. MEDROL [Concomitant]
  2. SINGULAIR [Concomitant]
  3. TRAMADOL HYDROCHLORIDE/ACETAMINOPHEN [Concomitant]
  4. ORENCIA [Concomitant]
  5. ASPIRIN [Concomitant]
     Dosage: 81 MG, UNK
  6. ZYLOPRIM [Concomitant]
  7. NORTRIPTYLINE HCL [Concomitant]
  8. PREDNISONE [Concomitant]
  9. CYCLOBENZAPRINE [Concomitant]
  10. CALCIUM [Concomitant]
  11. OXYCONTIN [Concomitant]
  12. FORTEO [Suspect]
     Indication: OSTEOPOROSIS
     Dosage: 20 UG, QD
     Route: 058
     Dates: start: 20091129, end: 20111201
  13. VITAMIN D [Concomitant]
  14. PROMETRIUM [Concomitant]
  15. ESTROGEL [Concomitant]

REACTIONS (2)
  - ARTHRITIS [None]
  - STRESS FRACTURE [None]
